FAERS Safety Report 5276592-X (Version None)
Quarter: 2007Q1

REPORT INFORMATION
  Report Type: 
  Country: None (occurrence: None)
  Receive Date: 20070327
  Receipt Date: 20070319
  Transmission Date: 20070707
  Serious: Yes (Hospitalization)
  Sender: FDA-Public Use
  Company Number: FR-ELI_LILLY_AND_COMPANY-FR200703003880

PATIENT
  Age: 1 Day
  Sex: Female
  Weight: 3.2 kg

DRUGS (5)
  1. ZYPREXA [Suspect]
     Route: 064
     Dates: end: 20060706
  2. LEXOMIL [Concomitant]
     Route: 064
     Dates: end: 20060706
  3. IMOVANE [Concomitant]
     Route: 064
     Dates: end: 20060706
  4. CLAFORAN [Concomitant]
     Route: 064
  5. FURADANTIN [Concomitant]

REACTIONS (3)
  - DRUG EXPOSURE DURING PREGNANCY [None]
  - DRUG WITHDRAWAL SYNDROME NEONATAL [None]
  - HYPOTONIA NEONATAL [None]
